FAERS Safety Report 5251572-9 (Version None)
Quarter: 2007Q1

REPORT INFORMATION
  Report Type: 
  Country: None (occurrence: None)
  Receive Date: 20070228
  Receipt Date: 20060919
  Transmission Date: 20070707
  Serious: No
  Sender: FDA-Public Use
  Company Number: US-GLAXOSMITHKLINE-A0620685A

PATIENT
  Age: 47 Year
  Sex: Male

DRUGS (3)
  1. LAMICTAL [Suspect]
     Indication: DEPRESSION
     Dosage: 6.25MG PER DAY
     Route: 048
  2. ATIVAN [Concomitant]
  3. ZOCOR [Concomitant]

REACTIONS (2)
  - FEELING HOT [None]
  - NIGHT SWEATS [None]
